FAERS Safety Report 20113466 (Version 3)
Quarter: 2021Q4

REPORT INFORMATION
  Report Type: Report from Study
  Country: US (occurrence: None)
  Receive Date: 20211125
  Receipt Date: 20211213
  Transmission Date: 20220303
  Serious: Yes (Death, Hospitalization, Other)
  Sender: FDA-Public Use
  Company Number: US-Merck Healthcare KGaA-9282396

PATIENT
  Sex: Female
  Weight: 64 kg

DRUGS (1)
  1. REBIF [Suspect]
     Active Substance: INTERFERON BETA-1A
     Indication: Multiple sclerosis
     Route: 058
     Dates: start: 20130118

REACTIONS (7)
  - Lung cancer metastatic [Fatal]
  - Metastases to central nervous system [Fatal]
  - Metastases to bone [Fatal]
  - Colitis [Unknown]
  - Localised oedema [Unknown]
  - Back pain [Unknown]
  - Neuralgia [Unknown]
